FAERS Safety Report 4285477-7 (Version None)
Quarter: 2004Q1

REPORT INFORMATION
  Report Type: 
  Country: None (occurrence: None)
  Receive Date: 20040202
  Receipt Date: 20040122
  Transmission Date: 20041129
  Serious: Yes (Hospitalization)
  Sender: FDA-Public Use
  Company Number: MK200401-0243-1

PATIENT
  Age: 52 Year
  Sex: Female

DRUGS (6)
  1. METHADONE HCL [Suspect]
     Indication: PAIN
     Dosage: 650MG, DAILY
  2. MORPHINE [Concomitant]
  3. LACTULOSE [Concomitant]
  4. ESTROGEN [Concomitant]
  5. PROGESTERONE [Concomitant]
  6. RANITIDINE [Concomitant]

REACTIONS (12)
  - BLOOD CREATINE PHOSPHOKINASE MB INCREASED [None]
  - CAROTID PULSE INCREASED [None]
  - EJECTION FRACTION DECREASED [None]
  - ELECTROCARDIOGRAM QT PROLONGED [None]
  - ELECTROCARDIOGRAM ST-T CHANGE [None]
  - HYPOKALAEMIA [None]
  - HYPOMAGNESAEMIA [None]
  - INTESTINAL FUNCTIONAL DISORDER [None]
  - RESPIRATORY RATE INCREASED [None]
  - SYNCOPE [None]
  - TORSADE DE POINTES [None]
  - VENTRICULAR TACHYCARDIA [None]
